FAERS Safety Report 23460482 (Version 4)
Quarter: 2024Q1

REPORT INFORMATION
  Report Type: Spontaneous
  Country: ES (occurrence: ES)
  Receive Date: 20240131
  Receipt Date: 20240221
  Transmission Date: 20240410
  Serious: Yes (Hospitalization, Other)
  Sender: FDA-Public Use
  Company Number: ES-Accord-403655

PATIENT
  Age: 66 Year
  Sex: Female
  Weight: 53.0 kg

DRUGS (6)
  1. FLUOROURACIL [Suspect]
     Active Substance: FLUOROURACIL
     Indication: Colorectal cancer metastatic
     Dosage: EVERY 2 WEEKS, IV BOLUS
     Route: 042
     Dates: start: 20210707, end: 20220929
  2. IRINOTECAN HYDROCHLORIDE [Suspect]
     Active Substance: IRINOTECAN HYDROCHLORIDE
     Indication: Colorectal cancer metastatic
     Dosage: EVERY 2 WEEKS
     Route: 042
     Dates: start: 20210707, end: 20220929
  3. LEUCOVORIN CALCIUM [Suspect]
     Active Substance: LEUCOVORIN CALCIUM
     Indication: Colorectal cancer metastatic
     Dosage: EVERY 2 WEEKS
     Route: 042
     Dates: start: 20210707, end: 20220929
  4. CETUXIMAB [Concomitant]
     Active Substance: CETUXIMAB
     Indication: Colorectal cancer metastatic
     Dosage: EVERY 2 WEEKS
     Route: 042
     Dates: start: 20210707, end: 20220929
  5. ENCORAFENIB [Concomitant]
     Active Substance: ENCORAFENIB
     Indication: Colorectal cancer metastatic
     Dosage: ONCE DAILY
     Route: 048
     Dates: start: 20210709, end: 20220929
  6. FLUOROURACIL [Suspect]
     Active Substance: FLUOROURACIL
     Indication: Colorectal cancer metastatic
     Dosage: EVERY 2 WEEKS, IV INFUSION
     Route: 042
     Dates: start: 20210707, end: 20220929

REACTIONS (1)
  - Colitis [Recovered/Resolved]

NARRATIVE: CASE EVENT DATE: 20221002
